FAERS Safety Report 5761094-4 (Version None)
Quarter: 2008Q2

REPORT INFORMATION
  Report Type: 
  Country: None (occurrence: None)
  Receive Date: 20080606
  Receipt Date: 20080523
  Transmission Date: 20081010
  Serious: Yes (Hospitalization)
  Sender: FDA-Public Use
  Company Number: JP-GENENTECH-261980

PATIENT
  Sex: Female
  Weight: 57.6 kg

DRUGS (3)
  1. BEVACIZUMAB [Suspect]
     Indication: NON-SMALL CELL LUNG CANCER
     Dosage: 864 MG, Q3W
     Route: 042
     Dates: start: 20080213
  2. PACLITAXEL [Suspect]
     Indication: NON-SMALL CELL LUNG CANCER
     Dosage: 316 MG, Q3W
     Route: 042
     Dates: start: 20080213
  3. CARBOPLATIN [Suspect]
     Indication: NON-SMALL CELL LUNG CANCER
     Dosage: 747 MG, Q3W
     Route: 042
     Dates: start: 20080213

REACTIONS (3)
  - MALAISE [None]
  - MIGRAINE [None]
  - NEUROPATHY PERIPHERAL [None]
